FAERS Safety Report 18003136 (Version 1)
Quarter: 2020Q3

REPORT INFORMATION
  Report Type: Spontaneous
  Country: US (occurrence: US)
  Receive Date: 20200709
  Receipt Date: 20200709
  Transmission Date: 20201103
  Serious: No
  Sender: FDA-Public Use
  Company Number: US-ASTELLAS-2019US041399

PATIENT
  Age: 69 Year
  Sex: Male

DRUGS (2)
  1. MYRBETRIQ [Suspect]
     Active Substance: MIRABEGRON
     Indication: PRODUCT USED FOR UNKNOWN INDICATION
     Route: 065
  2. MYRBETRIQ [Suspect]
     Active Substance: MIRABEGRON
     Dosage: HALF TABLET ONCE DAILY
     Route: 065
     Dates: start: 20191016

REACTIONS (3)
  - Blood pressure increased [Recovering/Resolving]
  - Product dose omission issue [Unknown]
  - Wrong technique in product usage process [Unknown]

NARRATIVE: CASE EVENT DATE: 201910
